FAERS Safety Report 9514578 (Version 1)
Quarter: 2013Q1

REPORT INFORMATION
  Report Type: Spontaneous
  Country: US (occurrence: None)
  Receive Date: 20130305
  Receipt Date: 20130305
  Transmission Date: 20140127
  Serious: Yes (Other)
  Sender: FDA-Public Use
  Company Number: 163-21880-12090506

PATIENT
  Age: 76 Year
  Sex: Female
  Weight: 59.42 kg

DRUGS (18)
  1. REVLIMID (LENALIDOMIDE) (25 MILLIGRAM, CAPSULES) [Suspect]
     Indication: PLASMA CELL MYELOMA
     Dosage: 25 MG, 21 IN 21 D, PO
     Route: 048
     Dates: start: 20091223, end: 20120222
  2. ACETAMINOPHEN (PARACETAMOL) (TABLETS) [Concomitant]
  3. BISACODYL (BISACODYL) (ENTERIC-COATED TABLET) [Concomitant]
  4. DIGOXIN (DIGOXIN) (TABLETS) [Concomitant]
  5. DILTIAZEM ER (DILTIAZEM HYDROCHLORIDE) (CAPSULES) [Concomitant]
  6. FENTANYL (FENTANYL) (POULTICE OR PATCH) [Concomitant]
  7. FERROUS SULFATE (FERROUS SULFATE) (TABLETS) [Concomitant]
  8. GLIMEPIRIDE [Suspect]
  9. ICY HOT NATURALS [Suspect]
  10. LOPERAMIDE (LOPERAMIDE) (CAPSULES) [Concomitant]
  11. MAGNESIUM OXIDE (MAGNESIUM OXIDE) (CHEWABLE TABLET) [Concomitant]
  12. METOPROLOL TARTRATE (METOPROLOL TARTRATE) (TABLETS) (METOPROLOL TARTRATE) [Concomitant]
  13. MILK OF MAGNESIA (MAGNESIUM HYDROXIDE) (SUSPENSION) [Concomitant]
  14. MULTIVITAMINS (MULTIVITAMINS) (TABLETS) [Concomitant]
  15. MYLANTA (MYLANTA) (SUSPENSION) [Concomitant]
  16. OMEPRAZOLE (OMEPRAZOLE) (CAPSULES) [Concomitant]
  17. POTASSIUM CHLORIDE SR (POTASSIUM CHLORIDE) (TABLETS) [Concomitant]
  18. SODIUM BICARBONATE (SODIUM BICARBONATE) (TABLETS) [Concomitant]

REACTIONS (3)
  - Pancytopenia [None]
  - Atrial fibrillation [None]
  - Urosepsis [None]
